APPROVED DRUG PRODUCT: CITANEST
Active Ingredient: PRILOCAINE HYDROCHLORIDE
Strength: 2% **Federal Register determination that product was not discontinued or withdrawn for safety or effectiveness reasons**
Dosage Form/Route: INJECTABLE;INJECTION
Application: N014763 | Product #005
Applicant: ASTRAZENECA LP
Approved: Approved Prior to Jan 1, 1982 | RLD: Yes | RS: No | Type: DISCN